FAERS Safety Report 13420632 (Version 4)
Quarter: 2020Q2

REPORT INFORMATION
  Report Type: Report from Study
  Country: GB (occurrence: GB)
  Receive Date: 20170408
  Receipt Date: 20200619
  Transmission Date: 20200713
  Serious: Yes (Hospitalization)
  Sender: FDA-Public Use
  Company Number: PHHY2017GB052417

PATIENT
  Age: 43 Year
  Sex: Male

DRUGS (6)
  1. LANSOPRAZOLE. [Concomitant]
     Active Substance: LANSOPRAZOLE
     Indication: PRODUCT USED FOR UNKNOWN INDICATION
     Dosage: 30 MG, QD (MORNING)
     Route: 048
     Dates: start: 20170412
  2. GILENYA [Suspect]
     Active Substance: FINGOLIMOD HYDROCHLORIDE
     Indication: RELAPSING-REMITTING MULTIPLE SCLEROSIS
     Dosage: 0.5 MG, QD
     Route: 048
     Dates: start: 20130923
  3. PARACETAMOL [Concomitant]
     Active Substance: ACETAMINOPHEN
     Indication: PRODUCT USED FOR UNKNOWN INDICATION
     Dosage: 4 DF, QD
     Route: 048
     Dates: start: 20170412
  4. MOVICOL [Concomitant]
     Active Substance: POLYETHYLENE GLYCOL 3350\POTASSIUM CHLORIDE\SODIUM BICARBONATE\SODIUM CHLORIDE
     Indication: PROPHYLAXIS
     Dosage: 1 DF (SACHET), BID
     Route: 048
     Dates: start: 20170412
  5. CODEINE [Concomitant]
     Active Substance: CODEINE
     Indication: PROPHYLAXIS
     Dosage: 4 DF, QD
     Route: 048
     Dates: start: 20170412
  6. SENNA [Concomitant]
     Active Substance: SENNA LEAF\SENNOSIDES\SENNOSIDES A AND B
     Indication: PROPHYLAXIS
     Dosage: 15 MG, BID
     Route: 048
     Dates: start: 20170412

REACTIONS (8)
  - Anal incontinence [Unknown]
  - Dural arteriovenous fistula [Recovered/Resolved]
  - Dyspnoea [Unknown]
  - Scar pain [Unknown]
  - Muscular weakness [Unknown]
  - Colitis ulcerative [Recovering/Resolving]
  - Back pain [Unknown]
  - Dural arteriovenous fistula [Unknown]

NARRATIVE: CASE EVENT DATE: 20160805
